FAERS Safety Report 10673815 (Version 1)
Quarter: 2014Q4

REPORT INFORMATION
  Report Type: Spontaneous
  Country: FR (occurrence: None)
  Receive Date: 20141222
  Receipt Date: 20141222
  Transmission Date: 20150529
  Serious: Yes (Other)
  Sender: FDA-Public Use
  Company Number: 2014338802

PATIENT
  Age: 39 Year
  Sex: Female

DRUGS (1)
  1. FRAGMINE (DALTERPARIN SODIUM) SOLUTION FOR INJECTION [Suspect]
     Active Substance: DALTEPARIN SODIUM

REACTIONS (4)
  - Exposure during pregnancy [None]
  - Product use issue [None]
  - Premature separation of placenta [None]
  - Haemorrhage in pregnancy [None]
